FAERS Safety Report 15008476 (Version 2)
Quarter: 2018Q2

REPORT INFORMATION
  Report Type: Spontaneous
  Country: US (occurrence: US)
  Receive Date: 20180613
  Receipt Date: 20180620
  Transmission Date: 20180711
  Serious: Yes (Hospitalization, Disabling, Other)
  Sender: FDA-Public Use
  Company Number: US-OTSUKA-2018_015710

PATIENT
  Sex: Female

DRUGS (4)
  1. ABILIFY [Suspect]
     Active Substance: ARIPIPRAZOLE
     Indication: ANXIETY
  2. ABILIFY [Suspect]
     Active Substance: ARIPIPRAZOLE
     Indication: INSOMNIA
  3. ABILIFY [Suspect]
     Active Substance: ARIPIPRAZOLE
     Indication: MAJOR DEPRESSION
     Dosage: 20 MG, QD
     Route: 065
     Dates: start: 200909, end: 201404
  4. ABILIFY [Suspect]
     Active Substance: ARIPIPRAZOLE
     Indication: POST-TRAUMATIC STRESS DISORDER

REACTIONS (16)
  - Suicide attempt [Recovered/Resolved]
  - Injury [Unknown]
  - Suicidal ideation [Recovered/Resolved]
  - Compulsive hoarding [Recovered/Resolved]
  - Gambling disorder [Recovered/Resolved]
  - Pain [Unknown]
  - Mental disorder [Unknown]
  - Social problem [Unknown]
  - Disability [Unknown]
  - Obsessive-compulsive disorder [Recovered/Resolved]
  - Economic problem [Unknown]
  - Incorrect dose administered [Unknown]
  - Emotional distress [Unknown]
  - Compulsive shopping [Recovered/Resolved]
  - Anhedonia [Unknown]
  - Product use in unapproved indication [Unknown]
